FAERS Safety Report 4350699-3 (Version None)
Quarter: 2004Q2

REPORT INFORMATION
  Report Type: 
  Country: None (occurrence: None)
  Receive Date: 20040430
  Receipt Date: 20040420
  Transmission Date: 20050107
  Serious: Yes (Other)
  Sender: FDA-Public Use
  Company Number: AU-MERCK-0404AUS00058

PATIENT
  Age: 77 Year
  Sex: Female
  Weight: 58 kg

DRUGS (3)
  1. FOSAMAX [Suspect]
     Indication: BONE DISORDER
     Route: 048
     Dates: start: 19980801, end: 19990206
  2. LORAZEPAM [Concomitant]
     Indication: SENSORY DISTURBANCE
     Route: 065
     Dates: start: 19940101
  3. TRIFOLIUM [Concomitant]
     Route: 065
     Dates: start: 19970101

REACTIONS (4)
  - BLINDNESS UNILATERAL [None]
  - OPTIC NEURITIS [None]
  - SCOTOMA [None]
  - VISUAL FIELD DEFECT [None]
